FAERS Safety Report 7128135-3 (Version None)
Quarter: 2010Q4

REPORT INFORMATION
  Report Type: 
  Country: None (occurrence: None)
  Receive Date: 20101112
  Receipt Date: 20101029
  Transmission Date: 20110411
  Serious: Yes (Disabling, Other)
  Sender: FDA-Public Use
  Company Number: 10-452

PATIENT
  Age: 69 Year
  Sex: Female

DRUGS (4)
  1. ALEVE [Suspect]
     Indication: PRODUCT USED FOR UNKNOWN INDICATION
     Dosage: 440 MG, DAILY, ORAL
     Route: 048
     Dates: start: 20100412, end: 20100527
  2. ANTIBIOTICS (NOS) [Concomitant]
  3. SENOKOT [Concomitant]
  4. OXYCODONE HCL AND ACETAMINOPHEN [Concomitant]

REACTIONS (3)
  - DEAFNESS BILATERAL [None]
  - DRUG INEFFECTIVE [None]
  - EAR DISCOMFORT [None]
